FAERS Safety Report 7031117-3 (Version None)
Quarter: 2010Q4

REPORT INFORMATION
  Report Type: 
  Country: None (occurrence: None)
  Receive Date: 20101006
  Receipt Date: 20100922
  Transmission Date: 20110411
  Serious: Yes (Other)
  Sender: FDA-Public Use
  Company Number: SE-MYLANLABS-2010S1017358

PATIENT
  Age: 74 Year
  Sex: Female

DRUGS (1)
  1. DICLOFENAC SODIUM [Suspect]
     Indication: PAIN
     Dates: end: 20100821

REACTIONS (10)
  - DECREASED APPETITE [None]
  - DIARRHOEA [None]
  - DRY MOUTH [None]
  - FATIGUE [None]
  - FLATULENCE [None]
  - HEADACHE [None]
  - OEDEMA MUCOSAL [None]
  - PAIN [None]
  - RASH [None]
  - SWELLING [None]
